FAERS Safety Report 10306075 (Version 1)
Quarter: 2014Q3

REPORT INFORMATION
  Report Type: Spontaneous
  Country: RU (occurrence: RU)
  Receive Date: 20140715
  Receipt Date: 20140715
  Transmission Date: 20150326
  Serious: Yes (Hospitalization)
  Sender: FDA-Public Use
  Company Number: RU-VIIV HEALTHCARE LIMITED-B1013785A

PATIENT
  Age: 42 Year
  Sex: Male

DRUGS (8)
  1. PYRAZINAMIDE. [Concomitant]
     Active Substance: PYRAZINAMIDE
     Indication: ANTIBIOTIC PROPHYLAXIS
  2. FINLEPSIN [Concomitant]
     Active Substance: CARBAMAZEPINE
     Indication: CONVULSION
     Route: 065
     Dates: start: 201402
  3. ISONIAZID. [Concomitant]
     Active Substance: ISONIAZID
     Indication: ANTIBIOTIC PROPHYLAXIS
     Dates: start: 20140226
  4. AMINOPHYLLINUM [Concomitant]
     Indication: BRONCHITIS
  5. PREZISTA [Suspect]
     Active Substance: DARUNAVIR ETHANOLATE
     Indication: HIV INFECTION
     Route: 065
     Dates: start: 20140307
  6. RITONAVIR [Suspect]
     Active Substance: RITONAVIR
     Indication: HIV INFECTION
     Route: 065
     Dates: start: 20140307
  7. COMBIVIR [Suspect]
     Active Substance: LAMIVUDINE\ZIDOVUDINE
     Indication: HIV INFECTION
     Dates: start: 20140307
  8. SONAPAX [Concomitant]

REACTIONS (9)
  - Convulsion [Recovering/Resolving]
  - Asthenia [Unknown]
  - Chest pain [Unknown]
  - Cold sweat [Unknown]
  - Dyspnoea [Unknown]
  - Back pain [Unknown]
  - Myalgia [Unknown]
  - Vomiting [Unknown]
  - Diarrhoea [Unknown]

NARRATIVE: CASE EVENT DATE: 201406
